FAERS Safety Report 8307026-6 (Version None)
Quarter: 2012Q2

REPORT INFORMATION
  Report Type: 
  Country: None (occurrence: None)
  Receive Date: 20120424
  Receipt Date: 20120417
  Transmission Date: 20120825
  Serious: Yes (Other)
  Sender: FDA-Public Use
  Company Number: PHEH2012US006167

PATIENT
  Sex: Male

DRUGS (1)
  1. DIOVAN [Suspect]
     Dosage: UNK UKN, UNK

REACTIONS (4)
  - COLON CANCER [None]
  - HODGKIN'S DISEASE [None]
  - BONE NEOPLASM MALIGNANT [None]
  - THYROID CANCER [None]
